FAERS Safety Report 24019136 (Version 1)
Quarter: 2024Q2

REPORT INFORMATION
  Report Type: Spontaneous
  Country: IN (occurrence: IN)
  Receive Date: 20240627
  Receipt Date: 20240627
  Transmission Date: 20240716
  Serious: Yes (Hospitalization, Other)
  Sender: FDA-Public Use
  Company Number: IN-PFIZER INC-PV202400083105

PATIENT
  Age: 70 Year
  Sex: Male

DRUGS (1)
  1. CRIZOTINIB [Suspect]
     Active Substance: CRIZOTINIB
     Dosage: 250 MG, 2X/DAY
     Route: 048
     Dates: start: 20240405

REACTIONS (8)
  - Hypoxia [Recovering/Resolving]
  - Dyspnoea [Recovering/Resolving]
  - Left ventricular dysfunction [Recovering/Resolving]
  - Pleural effusion [Recovering/Resolving]
  - Pleural thickening [Unknown]
  - Interstitial lung disease [Recovering/Resolving]
  - Neoplasm progression [Unknown]
  - Hilar lymphadenopathy [Recovering/Resolving]

NARRATIVE: CASE EVENT DATE: 20240101
